FAERS Safety Report 7681288-0 (Version None)
Quarter: 2011Q3

REPORT INFORMATION
  Report Type: 
  Country: None (occurrence: None)
  Receive Date: 20110812
  Receipt Date: 20110809
  Transmission Date: 20111222
  Serious: Yes (Other)
  Sender: FDA-Public Use
  Company Number: AT-ABBOTT-11P-009-0844151-00

PATIENT
  Sex: Female
  Weight: 65 kg

DRUGS (1)
  1. HUMIRA [Suspect]
     Indication: CROHN'S DISEASE

REACTIONS (6)
  - STAPHYLOCOCCAL SKIN INFECTION [None]
  - FOLLICULITIS [None]
  - PSORIASIS [None]
  - INFLAMMATION [None]
  - RASH PUSTULAR [None]
  - HISTOLOGY ABNORMAL [None]
